FAERS Safety Report 10029754 (Version 1)
Quarter: 2014Q1

REPORT INFORMATION
  Report Type: Spontaneous
  Country: US (occurrence: None)
  Receive Date: 20140321
  Receipt Date: 20140321
  Transmission Date: 20141002
  Serious: Yes (Other)
  Sender: FDA-Public Use
  Company Number: None

PATIENT
  Age: 64 Year
  Sex: Male

DRUGS (2)
  1. RIBAVIRIN [Suspect]
     Indication: CHRONIC HEPATITIS C
     Route: 048
     Dates: start: 20140218, end: 20140318
  2. RIBAVIRIN [Suspect]
     Indication: COMA HEPATIC
     Route: 048
     Dates: start: 20140218, end: 20140318

REACTIONS (1)
  - Skin reaction [None]
